FAERS Safety Report 12775564 (Version 1)
Quarter: 2016Q3

REPORT INFORMATION
  Report Type: Spontaneous
  Country: US (occurrence: US)
  Receive Date: 20160923
  Receipt Date: 20160923
  Transmission Date: 20161109
  Serious: No
  Sender: FDA-Public Use
  Company Number: US-ACTAVIS-2015-25704

PATIENT
  Age: 46 Year
  Sex: Female

DRUGS (1)
  1. CLOBETASOL PROPIONATE (AMALLC) [Suspect]
     Active Substance: CLOBETASOL PROPIONATE
     Indication: DERMATITIS CONTACT
     Dosage: UNK, UNKNOWN
     Route: 061
     Dates: start: 20151120, end: 20151120

REACTIONS (3)
  - Eye pain [Not Recovered/Not Resolved]
  - Product use issue [Recovered/Resolved]
  - Skin atrophy [Not Recovered/Not Resolved]

NARRATIVE: CASE EVENT DATE: 20151120
